FAERS Safety Report 8590579-0 (Version None)
Quarter: 2012Q3

REPORT INFORMATION
  Report Type: 
  Country: None (occurrence: None)
  Receive Date: 20120813
  Receipt Date: 20120803
  Transmission Date: 20120928
  Serious: No
  Sender: FDA-Public Use
  Company Number: US-ASTRAZENECA-2011SE36800

PATIENT
  Age: 79 Year
  Sex: Female

DRUGS (1)
  1. ARIMIDEX [Suspect]
     Route: 048

REACTIONS (12)
  - OEDEMA PERIPHERAL [None]
  - LACRIMATION INCREASED [None]
  - HOT FLUSH [None]
  - COLD SWEAT [None]
  - HEADACHE [None]
  - BREAST PAIN [None]
  - VISUAL IMPAIRMENT [None]
  - BLOOD PRESSURE DECREASED [None]
  - PARAESTHESIA [None]
  - DECREASED APPETITE [None]
  - VISION BLURRED [None]
  - RASH PRURITIC [None]
